FAERS Safety Report 9044626 (Version 1)
Quarter: 2013Q1

REPORT INFORMATION
  Report Type: Spontaneous
  Country: JP (occurrence: JP)
  Receive Date: 20130130
  Receipt Date: 20130130
  Transmission Date: 20140127
  Serious: Yes (Death)
  Sender: FDA-Public Use
  Company Number: JP-ASTRAZENECA-2013SE06045

PATIENT
  Sex: Female

DRUGS (5)
  1. DIPRIVAN [Suspect]
     Indication: SEDATION
     Dosage: DOSE UNKNOWN
     Route: 042
  2. LOCAL ANESTHETICS [Concomitant]
     Dosage: DOSE UNKNOWN
     Route: 049
  3. ANTISPASMODICS [Concomitant]
     Dosage: DOSE UNKNOWN
     Route: 030
  4. PENTAZOCINE [Concomitant]
     Route: 042
  5. DORMICUM [Concomitant]
     Route: 042

REACTIONS (2)
  - Respiratory failure [Fatal]
  - Circulatory collapse [Fatal]
